FAERS Safety Report 10146060 (Version 1)
Quarter: 2014Q2

REPORT INFORMATION
  Report Type: Other
  Country: GB (occurrence: GB)
  Receive Date: 20140501
  Receipt Date: 20140501
  Transmission Date: 20141212
  Serious: Yes (Hospitalization)
  Sender: FDA-Public Use
  Company Number: GB-PERRIGO-14GB004398

PATIENT
  Sex: 0

DRUGS (16)
  1. DEXSOL 0.4MG/ML PL00427/0137 [Suspect]
     Indication: PLASMA CELL MYELOMA
     Dosage: 20 MG, CYCLIC
     Route: 065
     Dates: start: 20140127
  2. DEXSOL 0.4MG/ML PL00427/0137 [Suspect]
     Dosage: 20 MG, CYCLIC
     Route: 065
     Dates: end: 20140212
  3. VELCADE [Suspect]
     Indication: PLASMA CELL MYELOMA
     Dosage: 1.3 MG/M2, CYCLIC
     Route: 058
     Dates: start: 20140127, end: 20140203
  4. VELCADE [Suspect]
     Dosage: 1.3 MG/M2, CYCLIC
     Route: 058
     Dates: end: 20140212
  5. ACICLOVIR [Concomitant]
     Indication: PROPHYLAXIS
     Dosage: 800 MG, BID
     Route: 048
     Dates: start: 20140127
  6. ALLOPURINOL [Concomitant]
     Indication: PROPHYLAXIS
     Dosage: 300 MG, QD
     Route: 048
     Dates: start: 20140127
  7. AMITRIPTYLINE [Concomitant]
     Indication: ANTIDEPRESSANT THERAPY
     Dosage: 10 MG, QD
     Route: 048
  8. AMLODIPINE [Concomitant]
     Indication: HYPERTENSION
     Dosage: 5 MG, QD
     Route: 048
  9. CO-TRIMOXAZOLE [Concomitant]
     Indication: PROPHYLAXIS
     Dosage: 480 MG, QD
     Route: 048
  10. FLUCONAZOLE [Concomitant]
     Indication: PROPHYLAXIS
     Dosage: 80 MG, QD
     Route: 048
     Dates: start: 20140127
  11. LANSOPRAZOLE [Concomitant]
     Indication: ANTACID THERAPY
     Dosage: 30 MG, QD
     Route: 048
     Dates: start: 20140127
  12. PERINDOPRIL [Concomitant]
     Indication: HYPERTENSION
     Dosage: 8 MG, QD
     Route: 048
  13. PRAMIPEXOLE [Concomitant]
     Indication: RESTLESS LEGS SYNDROME
     Dosage: 88 MG, QD
     Route: 048
  14. SERETIDE [Concomitant]
     Indication: PRODUCT USED FOR UNKNOWN INDICATION
     Dosage: UNK
     Route: 065
  15. TIOTROPIUM [Concomitant]
     Indication: PRODUCT USED FOR UNKNOWN INDICATION
     Dosage: 2.5 UG, QD
     Route: 065
  16. TRAMADOL [Concomitant]
     Indication: PAIN
     Dosage: UNK, PRN
     Route: 048

REACTIONS (5)
  - Respiratory syncytial virus bronchiolitis [Recovered/Resolved]
  - Orthostatic hypotension [Not Recovered/Not Resolved]
  - Respiratory syncytial virus test positive [Unknown]
  - Fall [Unknown]
  - Loss of consciousness [Unknown]
